FAERS Safety Report 22144602 (Version 1)
Quarter: 2023Q1

REPORT INFORMATION
  Report Type: Spontaneous
  Country: RU (occurrence: None)
  Receive Date: 20230328
  Receipt Date: 20230328
  Transmission Date: 20230418
  Serious: Yes (Death, Hospitalization, Other)
  Sender: FDA-Public Use
  Company Number: RU-ROCHE-3314010

PATIENT
  Age: 46 Year
  Sex: Female

DRUGS (1)
  1. ATEZOLIZUMAB [Suspect]
     Active Substance: ATEZOLIZUMAB
     Indication: Bronchial carcinoma
     Route: 065
     Dates: start: 202003, end: 202005

REACTIONS (13)
  - Malignant neoplasm oligoprogression [Unknown]
  - Metastases to bone [Unknown]
  - SARS-CoV-2 test positive [Unknown]
  - Infectious pleural effusion [Unknown]
  - Pneumonia [Unknown]
  - Disease progression [Fatal]
  - Tracheobronchial stent insertion [Unknown]
  - Pyrexia [Unknown]
  - Dyspnoea [Unknown]
  - Lymphadenopathy [Unknown]
  - Condition aggravated [Unknown]
  - Dyspnoea exertional [Unknown]
  - Haemoptysis [Unknown]

NARRATIVE: CASE EVENT DATE: 20200501
